FAERS Safety Report 18121925 (Version 2)
Quarter: 2020Q4

REPORT INFORMATION
  Report Type: Spontaneous
  Country: AU (occurrence: AU)
  Receive Date: 20200807
  Receipt Date: 20201009
  Transmission Date: 20210113
  Serious: Yes (Hospitalization, Other)
  Sender: FDA-Public Use
  Company Number: AU-BRISTOL-MYERS SQUIBB COMPANY-BMS-2020-047991

PATIENT
  Age: 85 Year
  Sex: Female

DRUGS (3)
  1. YERVOY [Suspect]
     Active Substance: IPILIMUMAB
     Indication: METASTATIC MALIGNANT MELANOMA
     Dosage: 160 MG/3 WEEKS IVI X 3 DOSES
     Route: 042
     Dates: start: 20200406
  2. INSULIN [Concomitant]
     Active Substance: INSULIN NOS
     Indication: PRODUCT USED FOR UNKNOWN INDICATION
     Dosage: UNK
     Route: 065
  3. VEDOLIZUMAB [Suspect]
     Active Substance: VEDOLIZUMAB
     Indication: IMMUNE-MEDIATED ENTEROCOLITIS
     Dosage: TWICE AT STD DOSE X 2
     Route: 065

REACTIONS (7)
  - Hypophosphataemia [Unknown]
  - Hypomagnesaemia [Unknown]
  - Supraventricular tachycardia [Unknown]
  - Hyperglycaemia [Unknown]
  - Escherichia bacteraemia [Unknown]
  - Immune-mediated enterocolitis [Recovered/Resolved]
  - Hypokalaemia [Unknown]

NARRATIVE: CASE EVENT DATE: 20200523
